FAERS Safety Report 8506041-7 (Version None)
Quarter: 2012Q3

REPORT INFORMATION
  Report Type: 
  Country: None (occurrence: None)
  Receive Date: 20120712
  Receipt Date: 20120703
  Transmission Date: 20120928
  Serious: Yes (Hospitalization)
  Sender: FDA-Public Use
  Company Number: US-ASTRAZENECA-2002UW16428

PATIENT
  Age: 62 Year
  Sex: Female
  Weight: 83.9 kg

DRUGS (17)
  1. SEROQUEL [Suspect]
     Indication: SLEEP DISORDER
     Route: 048
  2. NAVANE [Concomitant]
  3. VANCOMYCIN [Concomitant]
     Indication: ANTIBIOTIC THERAPY
  4. SEROQUEL [Suspect]
     Route: 048
     Dates: start: 20050101
  5. PHENERGAN HCL [Concomitant]
  6. PRILOSEC [Suspect]
     Route: 048
  7. KLONOPIN [Concomitant]
     Indication: PANIC ATTACK
  8. FIORICET W/ CODEINE [Concomitant]
  9. SEROQUEL [Suspect]
     Route: 048
     Dates: start: 20050101
  10. SEROQUEL [Suspect]
     Route: 048
     Dates: start: 20050101
  11. CELEXA [Concomitant]
  12. SEROQUEL [Suspect]
     Indication: DEPRESSION
     Route: 048
  13. NEXIUM [Suspect]
     Indication: GASTROOESOPHAGEAL REFLUX DISEASE
     Route: 048
  14. SEROQUEL [Suspect]
     Indication: BIPOLAR DISORDER
     Route: 048
  15. VISTARIL [Concomitant]
  16. LIPITOR [Concomitant]
  17. ASACOL [Concomitant]

REACTIONS (21)
  - FEELING JITTERY [None]
  - OROPHARYNGEAL PAIN [None]
  - FEELING ABNORMAL [None]
  - THINKING ABNORMAL [None]
  - HEADACHE [None]
  - BONE PAIN [None]
  - DYSPNOEA [None]
  - VISUAL IMPAIRMENT [None]
  - DRUG DOSE OMISSION [None]
  - CHRONIC OBSTRUCTIVE PULMONARY DISEASE [None]
  - TREMOR [None]
  - CLOSTRIDIAL INFECTION [None]
  - ABNORMAL BEHAVIOUR [None]
  - MALAISE [None]
  - INFLUENZA [None]
  - CRYING [None]
  - STAPHYLOCOCCAL INFECTION [None]
  - HEART SOUNDS [None]
  - DRUG INEFFECTIVE [None]
  - PNEUMONIA [None]
  - EMPHYSEMA [None]
